FAERS Safety Report 7897705-7 (Version None)
Quarter: 2011Q4

REPORT INFORMATION
  Report Type: 
  Country: None (occurrence: None)
  Receive Date: 20111107
  Receipt Date: 20111103
  Transmission Date: 20120403
  Serious: Yes (Life-Threatening)
  Sender: FDA-Public Use
  Company Number: NZ-B.I. PHARMACEUTICALS,INC./RIDGEFIELD-2011-AU-02012AU

PATIENT
  Sex: Male

DRUGS (5)
  1. CANDESARTAN CILEXETIL [Concomitant]
     Dosage: 32 MG
     Route: 048
  2. ATORVASTATIN [Concomitant]
     Dosage: 40 MG
     Route: 048
  3. PRADAXA [Suspect]
     Dosage: 300 MG
     Route: 048
     Dates: start: 20110721, end: 20110920
  4. METFORMIN HCL [Concomitant]
     Dosage: 1 G
     Route: 048
  5. ATENOLOL [Concomitant]
     Dosage: 100 MG
     Route: 048

REACTIONS (1)
  - MYOCARDIAL INFARCTION [None]
